FAERS Safety Report 25894852 (Version 2)
Quarter: 2025Q4

REPORT INFORMATION
  Report Type: Spontaneous
  Country: US (occurrence: None)
  Receive Date: 20251008
  Receipt Date: 20251229
  Transmission Date: 20260118
  Serious: No
  Sender: CHIESI
  Company Number: US-CHIESI-2025CHF06244

PATIENT
  Sex: Male
  Weight: 20.098 kg

DRUGS (2)
  1. FILSUVEZ [Suspect]
     Active Substance: BIRCH TRITERPENES
     Indication: Epidermolysis bullosa
     Dosage: UNK UNK, PRN
     Route: 048
     Dates: start: 20251117
  2. FILSUVEZ [Suspect]
     Active Substance: BIRCH TRITERPENES
     Indication: Off label use

REACTIONS (5)
  - Fall [Unknown]
  - Wound [Unknown]
  - Wound [Unknown]
  - Nasal mucosal blistering [Unknown]
  - Off label use [Not Recovered/Not Resolved]

NARRATIVE: CASE EVENT DATE: 20250101
